FAERS Safety Report 8588978 (Version 3)
Quarter: 2013Q1

REPORT INFORMATION
  Report Type: Spontaneous
  Country: BR (occurrence: BR)
  Receive Date: 20120531
  Receipt Date: 20130327
  Transmission Date: 20140127
  Serious: Yes (Other)
  Sender: FDA-Public Use
  Company Number: BR-ELI_LILLY_AND_COMPANY-BR201205006813

PATIENT
  Age: 81 None
  Sex: Female
  Weight: 47 kg

DRUGS (8)
  1. FORTEO [Suspect]
     Indication: OSTEOPOROSIS
     Dosage: 20 UG, QD
     Route: 058
     Dates: start: 20110827
  2. ENALAPRIL MALEATE [Concomitant]
     Indication: HYPERTENSION
     Dosage: 10 MG, QD
     Route: 065
  3. PARACETAMOL [Concomitant]
     Indication: PAIN
     Dosage: UNK, UNKNOWN
     Route: 065
  4. CALCIUM SANDOZ [Concomitant]
     Indication: VITAMIN SUPPLEMENTATION
     Dosage: UNK, UNKNOWN
     Route: 065
  5. STILNOX [Concomitant]
     Dosage: 0.25 UNK, PRN
     Route: 065
  6. METADON [Concomitant]
     Indication: PAIN
     Dosage: UNK, PRN
     Route: 065
  7. GLUCOSAMINE SULFATE [Concomitant]
     Indication: OSTEOPOROSIS
     Dosage: UNK, UNKNOWN
     Route: 065
  8. SERTRALINE HYDROCHLORIDE [Concomitant]
     Dosage: UNK, UNKNOWN
     Route: 065

REACTIONS (4)
  - Arrhythmia [Recovering/Resolving]
  - Syncope [Recovering/Resolving]
  - Cardiac failure [Recovering/Resolving]
  - Feeling abnormal [Recovering/Resolving]
